FAERS Safety Report 6037647-5 (Version None)
Quarter: 2009Q1

REPORT INFORMATION
  Report Type: 
  Country: None (occurrence: None)
  Receive Date: 20090114
  Receipt Date: 20090108
  Transmission Date: 20090719
  Serious: No
  Sender: FDA-Public Use
  Company Number: US-B.I. PHARMACEUTICALS,INC./RIDGEFIELD-2009-BP-00287BP

PATIENT
  Sex: Female

DRUGS (3)
  1. SPIRIVA [Suspect]
     Indication: BRONCHIECTASIS
     Dosage: 18MCG
     Route: 055
     Dates: start: 20080601
  2. SPIRIVA [Suspect]
     Indication: ASTHMA
  3. SPIRIVA [Suspect]
     Indication: MYCOBACTERIUM AVIUM COMPLEX INFECTION

REACTIONS (1)
  - THERAPEUTIC RESPONSE DECREASED [None]
